FAERS Safety Report 6223136-1 (Version None)
Quarter: 2009Q2

REPORT INFORMATION
  Report Type: 
  Country: None (occurrence: None)
  Receive Date: 20090609
  Receipt Date: 20090527
  Transmission Date: 20091009
  Serious: Yes (Death, Hospitalization)
  Sender: FDA-Public Use
  Company Number: GR-WYE-H09555509

PATIENT
  Age: 62 Year

DRUGS (6)
  1. TYGACIL [Suspect]
     Indication: ACINETOBACTER INFECTION
     Dosage: 100 MG LOADING DOSE FOLLOWED BY 50 MG EVERY 12 HOURS INTRAVENOUS
     Route: 042
  2. TYGACIL [Suspect]
     Indication: ENTEROCOCCAL INFECTION
     Dosage: 100 MG LOADING DOSE FOLLOWED BY 50 MG EVERY 12 HOURS INTRAVENOUS
     Route: 042
  3. TYGACIL [Suspect]
     Indication: KLEBSIELLA INFECTION
     Dosage: 100 MG LOADING DOSE FOLLOWED BY 50 MG EVERY 12 HOURS INTRAVENOUS
     Route: 042
  4. TYGACIL [Suspect]
     Indication: PERITONITIS
     Dosage: 100 MG LOADING DOSE FOLLOWED BY 50 MG EVERY 12 HOURS INTRAVENOUS
     Route: 042
  5. COLISTIN (COLISTIN) [Concomitant]
  6. ZYVOX [Concomitant]

REACTIONS (1)
  - DRUG INEFFECTIVE [None]
